FAERS Safety Report 8594545-0 (Version None)
Quarter: 2012Q3

REPORT INFORMATION
  Report Type: 
  Country: None (occurrence: None)
  Receive Date: 20120815
  Receipt Date: 20120808
  Transmission Date: 20120928
  Serious: Yes (Hospitalization)
  Sender: FDA-Public Use
  Company Number: IE-US-EMD SERONO, INC.-7145150

PATIENT
  Sex: Male

DRUGS (1)
  1. REBIF [Suspect]
     Indication: RELAPSING-REMITTING MULTIPLE SCLEROSIS
     Route: 058
     Dates: start: 20100707

REACTIONS (6)
  - URINARY INCONTINENCE [None]
  - MUSCLE SPASMS [None]
  - CENTRAL NERVOUS SYSTEM LESION [None]
  - SENSORY LOSS [None]
  - FAECAL INCONTINENCE [None]
  - HYPOAESTHESIA [None]
